FAERS Safety Report 10719283 (Version 2)
Quarter: 2015Q1

REPORT INFORMATION
  Report Type: Spontaneous
  Country: US (occurrence: US)
  Receive Date: 20150119
  Receipt Date: 20150119
  Transmission Date: 20150721
  Serious: No
  Sender: FDA-Public Use
  Company Number: US-UNITED THERAPEUTICS-UNT-2014-003721

PATIENT
  Age: 42 Year
  Sex: Female
  Weight: 52.61 kg

DRUGS (1)
  1. REMODULIN [Suspect]
     Active Substance: TREPROSTINIL
     Indication: COR PULMONALE CHRONIC
     Dosage: 0.05 ?G/KG/MIN, CONTINUING
     Route: 058
     Dates: start: 20140205

REACTIONS (4)
  - Device dislocation [Unknown]
  - Dyspnoea [Recovering/Resolving]
  - Drug dose omission [Unknown]
  - Malaise [Unknown]

NARRATIVE: CASE EVENT DATE: 20140703
